FAERS Safety Report 19774208 (Version 1)
Quarter: 2021Q3

REPORT INFORMATION
  Report Type: Spontaneous
  Country: US (occurrence: US)
  Receive Date: 20210901
  Receipt Date: 20210901
  Transmission Date: 20211014
  Serious: No
  Sender: FDA-Public Use
  Company Number: US-TEVA-2021-US-1941652

PATIENT
  Age: 55 Year
  Sex: Female
  Weight: 53.52 kg

DRUGS (7)
  1. ADAPALENE. [Suspect]
     Active Substance: ADAPALENE
     Indication: SKIN SWELLING
     Route: 061
     Dates: start: 2021
  2. CLINDAMYCIN PHOSPHATE. [Suspect]
     Active Substance: CLINDAMYCIN PHOSPHATE
     Indication: PRURITUS
  3. METROGEL [Concomitant]
     Active Substance: METRONIDAZOLE
     Route: 065
  4. ADAPALENE. [Suspect]
     Active Substance: ADAPALENE
     Indication: PRURITUS
  5. PIMECROLIMUS CREAM [Suspect]
     Active Substance: PIMECROLIMUS
     Indication: SKIN SWELLING
     Route: 061
     Dates: start: 2021
  6. CLINDAMYCIN PHOSPHATE. [Suspect]
     Active Substance: CLINDAMYCIN PHOSPHATE
     Indication: SKIN SWELLING
     Route: 061
     Dates: start: 2021
  7. PIMECROLIMUS CREAM [Suspect]
     Active Substance: PIMECROLIMUS
     Indication: PRURITUS

REACTIONS (1)
  - Drug ineffective [Unknown]

NARRATIVE: CASE EVENT DATE: 2021
